FAERS Safety Report 4274966-7 (Version None)
Quarter: 2004Q1

REPORT INFORMATION
  Report Type: 
  Country: None (occurrence: None)
  Receive Date: 20040120
  Receipt Date: 20040109
  Transmission Date: 20041129
  Serious: No
  Sender: FDA-Public Use
  Company Number: 7144

PATIENT
  Age: 79 Year
  Sex: Female

DRUGS (1)
  1. METHYLENE BLUE [Suspect]
     Indication: BLADDER TUMOUR RESECTION
     Dosage: NI, IV
     Route: 042
     Dates: start: 20031211, end: 20031211

REACTIONS (2)
  - LEFT VENTRICULAR FAILURE [None]
  - PULMONARY OEDEMA [None]
